FAERS Safety Report 6284299-5 (Version None)
Quarter: 2009Q3

REPORT INFORMATION
  Report Type: 
  Country: None (occurrence: None)
  Receive Date: 20090727
  Receipt Date: 20090707
  Transmission Date: 20100115
  Serious: Yes (Death, Other)
  Sender: FDA-Public Use
  Company Number: NL-CELGENEUS-114-21880-09071527

PATIENT

DRUGS (9)
  1. REVLIMID [Suspect]
     Indication: MULTIPLE MYELOMA
     Route: 048
     Dates: start: 20070301, end: 20071130
  2. REVLIMID [Suspect]
     Dosage: DOSAGE ADJUSTMENT
     Route: 048
  3. REVLIMID [Suspect]
     Dosage: DOSAGE ADJUSTMENT
     Route: 048
  4. DEXAMETHASONE [Suspect]
     Indication: MULTIPLE MYELOMA
     Route: 065
     Dates: start: 20070301, end: 20071130
  5. DEXAMETHASONE [Suspect]
     Route: 065
  6. DEXAMETHASONE [Suspect]
     Route: 065
  7. ACETYLSALICYLIC ACID [Concomitant]
     Route: 065
  8. LMWH [Concomitant]
     Route: 065
  9. WARFARIN SODIUM [Concomitant]
     Route: 065

REACTIONS (12)
  - CAUDA EQUINA SYNDROME [None]
  - DISEASE PROGRESSION [None]
  - DRUG TOXICITY [None]
  - EMBOLISM VENOUS [None]
  - GRAFT VERSUS HOST DISEASE [None]
  - HAEMATOTOXICITY [None]
  - INFECTION [None]
  - NEUTROPENIC SEPSIS [None]
  - NO THERAPEUTIC RESPONSE [None]
  - PNEUMONIA [None]
  - POLYNEUROPATHY [None]
  - SEPSIS [None]
